FAERS Safety Report 8548365-3 (Version None)
Quarter: 2012Q3

REPORT INFORMATION
  Report Type: 
  Country: None (occurrence: None)
  Receive Date: 20120717
  Receipt Date: 20120702
  Transmission Date: 20120928
  Serious: Yes (Other)
  Sender: FDA-Public Use
  Company Number: 2012MA008195

PATIENT
  Age: 7 Year
  Sex: Female

DRUGS (2)
  1. METHYLPHENIDATE HYDROCHLORIDE [Suspect]
     Indication: ATTENTION DEFICIT/HYPERACTIVITY DISORDER
     Dosage: 10 MG;QAM
  2. METHYLPHENIDATE HCL [Suspect]
     Indication: ATTENTION DEFICIT/HYPERACTIVITY DISORDER
     Dosage: 15 MG;QD

REACTIONS (7)
  - INSOMNIA [None]
  - GRAND MAL CONVULSION [None]
  - POOR QUALITY SLEEP [None]
  - EPILEPSY [None]
  - TRISMUS [None]
  - TONIC CLONIC MOVEMENTS [None]
  - FATIGUE [None]
